FAERS Safety Report 5678053-2 (Version None)
Quarter: 2008Q1

REPORT INFORMATION
  Report Type: 
  Country: None (occurrence: None)
  Receive Date: 20080319
  Receipt Date: 20080226
  Transmission Date: 20080703
  Serious: No
  Sender: FDA-Public Use
  Company Number: 2008S1003353

PATIENT
  Age: 16 Year

DRUGS (1)
  1. DIPYRONE (METAMIZOLE SODIUM) [Suspect]
     Dosage: 400 MG;TABLET;ORAL;ONCE
     Route: 048

REACTIONS (6)
  - ABDOMINAL PAIN [None]
  - FLANK PAIN [None]
  - FLUID INTAKE REDUCED [None]
  - RENAL FAILURE ACUTE [None]
  - SUICIDE ATTEMPT [None]
  - VOMITING [None]
